FAERS Safety Report 8879062 (Version 1)
Quarter: 2012Q4

REPORT INFORMATION
  Report Type: Spontaneous
  Country: US (occurrence: None)
  Receive Date: 20121031
  Receipt Date: 20121031
  Transmission Date: 20130627
  Serious: No
  Sender: FDA-Public Use
  Company Number: None

PATIENT
  Age: 31 Year
  Sex: Female

DRUGS (1)
  1. FENTANYL [Suspect]
     Dosage: 1 patch every 72 hours top
     Route: 061
     Dates: start: 20120620, end: 20121030

REACTIONS (1)
  - Product adhesion issue [None]
